FAERS Safety Report 6252204-3 (Version None)
Quarter: 2009Q2

REPORT INFORMATION
  Report Type: 
  Country: None (occurrence: None)
  Receive Date: 20090629
  Receipt Date: 20090615
  Transmission Date: 20091009
  Serious: Yes (Hospitalization)
  Sender: FDA-Public Use
  Company Number: IDA-00222

PATIENT
  Sex: Female

DRUGS (2)
  1. PROPRANOLOL [Suspect]
     Indication: HAEMANGIOMA
     Dosage: 5 ML TID ORAL
     Route: 048
     Dates: start: 20080801, end: 20090201
  2. L-THYROXINE (LEVOTHYROXINE) [Concomitant]

REACTIONS (1)
  - PYELONEPHRITIS [None]
